FAERS Safety Report 4725278-6 (Version None)
Quarter: 2005Q3

REPORT INFORMATION
  Report Type: 
  Country: None (occurrence: None)
  Receive Date: 20050725
  Receipt Date: 20050713
  Transmission Date: 20060218
  Serious: Yes (Other)
  Sender: FDA-Public Use
  Company Number: 2005102312

PATIENT
  Age: 69 Year
  Sex: Female
  Weight: 36.2878 kg

DRUGS (6)
  1. ZOLOFT [Suspect]
     Dosage: ( 1 IN 1 D)
  2. DETROL LA [Suspect]
     Indication: HYPERTONIC BLADDER
     Dosage: 4 MG (1 IN 1 D)
     Dates: start: 20050101
  3. SINEQUAN [Concomitant]
  4. DEXTROAMPHETAMINE (DEXAMFETAMINE) [Concomitant]
  5. ALL OTHER THERAPEUTIC PRODUCTS [Concomitant]
  6. VALIUM [Concomitant]

REACTIONS (5)
  - DRUG INEFFECTIVE [None]
  - HYPERTONIC BLADDER [None]
  - NERVOUSNESS [None]
  - THIRST [None]
  - URINARY INCONTINENCE [None]
